FAERS Safety Report 16771438 (Version 1)
Quarter: 2019Q3

REPORT INFORMATION
  Report Type: Spontaneous
  Country: AT (occurrence: AT)
  Receive Date: 20190904
  Receipt Date: 20190904
  Transmission Date: 20191005
  Serious: Yes (Other)
  Sender: FDA-Public Use
  Company Number: AT-BAYER-2019-156950

PATIENT
  Sex: Female

DRUGS (2)
  1. VITRAKVI [Suspect]
     Active Substance: LAROTRECTINIB
     Dosage: UNK
     Dates: start: 20190826
  2. VITRAKVI [Suspect]
     Active Substance: LAROTRECTINIB
     Dosage: UNK
     Dates: start: 20190612, end: 20190821

REACTIONS (3)
  - Aphasia [Recovering/Resolving]
  - Brain oedema [Recovering/Resolving]
  - Movement disorder [None]

NARRATIVE: CASE EVENT DATE: 20190821
